FAERS Safety Report 10162493 (Version 2)
Quarter: 2014Q2

REPORT INFORMATION
  Report Type: Spontaneous
  Country: GR (occurrence: GR)
  Receive Date: 20140509
  Receipt Date: 20140522
  Transmission Date: 20141212
  Serious: Yes (Other)
  Sender: FDA-Public Use
  Company Number: GR-TEVA-478570ISR

PATIENT
  Sex: 0

DRUGS (3)
  1. OXALIPLATIN TEVA [Suspect]
  2. CAPECITABINE TEVA 500MG [Suspect]
  3. CETUXIMAB [Suspect]

REACTIONS (6)
  - Neurotoxicity [Unknown]
  - Rash [Unknown]
  - Anaemia [Unknown]
  - Thrombocytopenia [Unknown]
  - Gastrointestinal toxicity [Unknown]
  - Diarrhoea [Unknown]
